FAERS Safety Report 19753585 (Version 3)
Quarter: 2021Q4

REPORT INFORMATION
  Report Type: Spontaneous
  Country: GB (occurrence: GB)
  Receive Date: 20210827
  Receipt Date: 20211007
  Transmission Date: 20220303
  Serious: Yes (Death)
  Sender: FDA-Public Use
  Company Number: GB-CELLTRION INC.-2018GB023205

PATIENT
  Age: 58 Year
  Sex: Female

DRUGS (316)
  1. CAPECITABINE [Suspect]
     Active Substance: CAPECITABINE
     Indication: Breast cancer metastatic
     Route: 048
  2. CAPECITABINE [Suspect]
     Active Substance: CAPECITABINE
     Indication: Breast cancer metastatic
     Dosage: 1500 MILLIGRAM, BID
     Route: 048
     Dates: end: 20170728
  3. CAPECITABINE [Suspect]
     Active Substance: CAPECITABINE
     Indication: HER2 positive breast cancer
     Route: 048
     Dates: start: 20170210
  4. CAPECITABINE [Suspect]
     Active Substance: CAPECITABINE
     Indication: HER2 positive breast cancer
     Route: 048
     Dates: start: 20170210, end: 20170728
  5. CAPECITABINE [Suspect]
     Active Substance: CAPECITABINE
     Route: 048
  6. CAPECITABINE [Suspect]
     Active Substance: CAPECITABINE
     Route: 048
     Dates: start: 20170210, end: 20170728
  7. CAPECITABINE [Suspect]
     Active Substance: CAPECITABINE
     Route: 048
  8. CAPECITABINE [Suspect]
     Active Substance: CAPECITABINE
     Dosage: 3000 MILLIGRAMG, BID
     Route: 048
     Dates: start: 20170210, end: 20170728
  9. CAPECITABINE [Suspect]
     Active Substance: CAPECITABINE
     Dosage: 1500 MG, (FREQUENCY: 0.5 DAY)
     Route: 048
  10. CAPECITABINE [Suspect]
     Active Substance: CAPECITABINE
     Dosage: 1500 MILLIGRAM, 0.5 DAY (3000MG ONCE DAILY)
     Route: 048
     Dates: start: 20170210, end: 20170728
  11. CAPECITABINE [Suspect]
     Active Substance: CAPECITABINE
  12. CAPECITABINE [Suspect]
     Active Substance: CAPECITABINE
     Dosage: 6000 MILLIGRAM DAILY; 3000 MILLIGRAM, BID
     Route: 048
     Dates: start: 20170210, end: 20170728
  13. CAPECITABINE [Suspect]
     Active Substance: CAPECITABINE
     Dosage: 3000MG ONCE DAILY (DOSE FORM: 82)
     Route: 048
  14. CAPECITABINE [Suspect]
     Active Substance: CAPECITABINE
     Route: 048
  15. CAPECITABINE [Suspect]
     Active Substance: CAPECITABINE
     Dosage: 3000 MILLIGRAM DAILY; 1500 MILLIGRAM, BID
     Route: 048
  16. DOCETAXEL [Suspect]
     Active Substance: DOCETAXEL
     Indication: Breast cancer metastatic
     Dosage: 108 MILLIGRAM, Q3W (DOSE MODIFIED)
     Route: 042
  17. DOCETAXEL [Suspect]
     Active Substance: DOCETAXEL
     Indication: Breast cancer metastatic
     Dosage: 86 MILLIGRAM, Q3WK, DOSE DISCONTINUED
     Route: 042
     Dates: start: 20150629, end: 20150720
  18. DOCETAXEL [Suspect]
     Active Substance: DOCETAXEL
     Indication: HER2 positive breast cancer
     Dosage: 108 MILLIGRAM, EVERY 3 WEEKS ,DOSE MODIFIED (DOSE FORM: 120)
     Route: 042
     Dates: start: 20150602, end: 20150602
  19. DOCETAXEL [Suspect]
     Active Substance: DOCETAXEL
     Indication: HER2 positive breast cancer
     Route: 042
     Dates: start: 20150629, end: 20150720
  20. DOCETAXEL [Suspect]
     Active Substance: DOCETAXEL
     Dosage: 86 MILLIGRAM, Q3WK, DOSE DISCONTINUED (DOSE FORM: 16) CUMULATIVE DOSE: 308.57144 MG
     Route: 042
     Dates: start: 20150629, end: 20150720
  21. DOCETAXEL [Suspect]
     Active Substance: DOCETAXEL
     Dosage: 80 MILLIGRAM, Q3W (DOSE DISCONTINUED)
     Route: 042
     Dates: start: 20150629, end: 20150720
  22. DOCETAXEL [Suspect]
     Active Substance: DOCETAXEL
     Dosage: 86 MILLIGRAM, Q3WK, DOSE DISCONTINUED
     Route: 042
     Dates: start: 20150629, end: 20150720
  23. DOCETAXEL [Suspect]
     Active Substance: DOCETAXEL
     Dosage: 108 MILLIGRAM, Q3W,DOSE MODIFIED
     Route: 042
     Dates: start: 20150602, end: 20150602
  24. DOCETAXEL [Suspect]
     Active Substance: DOCETAXEL
     Route: 042
  25. DOCETAXEL [Suspect]
     Active Substance: DOCETAXEL
     Route: 042
  26. DOCETAXEL [Suspect]
     Active Substance: DOCETAXEL
     Dosage: 80 MG, EVERY 3 WEEKS (DOSE DISCONTINUED)
     Route: 042
     Dates: start: 20150629, end: 20150720
  27. DOCETAXEL [Suspect]
     Active Substance: DOCETAXEL
     Dosage: 86 MILLIGRAM, Q3WK, DOSE DISCONTINUED
     Route: 042
  28. DOCETAXEL [Suspect]
     Active Substance: DOCETAXEL
     Dosage: DOSE DISCONTINUED
     Route: 042
     Dates: start: 20150629, end: 20150720
  29. DOCETAXEL [Suspect]
     Active Substance: DOCETAXEL
     Route: 042
     Dates: start: 20150602, end: 20150602
  30. DOCETAXEL [Suspect]
     Active Substance: DOCETAXEL
     Dosage: 86 MILLIGRAM, Q3WK, DOSE DISCONTINUED (DOSE FORM: 16) CUMULATIVE DOSE: 308.57144 MG
     Route: 042
     Dates: start: 20150629, end: 20150720
  31. DOCETAXEL [Suspect]
     Active Substance: DOCETAXEL
     Dosage: 86 MILLIGRAM, Q3WK, DOSE (CUMULATIVE DOSE: 4345.048 MG)
     Route: 042
     Dates: start: 20150629, end: 20150720
  32. DOCETAXEL [Suspect]
     Active Substance: DOCETAXEL
     Dosage: 108 MG, Q3W (DOSE FORM: 16)
     Route: 042
  33. DOCETAXEL [Suspect]
     Active Substance: DOCETAXEL
     Dosage: 108 MG, Q3W (DOSE FORM: 16)
     Route: 042
  34. DOCETAXEL [Suspect]
     Active Substance: DOCETAXEL
     Dosage: 108 MILLIGRAM, Q3WK (CUMULATIVE DOSE: 5595.4287 MG)
     Route: 042
     Dates: start: 20150602, end: 20150602
  35. DOCETAXEL [Suspect]
     Active Substance: DOCETAXEL
     Dosage: 80 MG, EVERY 3 WEEKS (DOSE DISCONTINUED)
     Dates: start: 20150629
  36. DOCETAXEL [Suspect]
     Active Substance: DOCETAXEL
     Dosage: 86 MILLIGRAM, Q3W, DOSE DISCONTINUED, THREE WEEK (DOSE FORM: 120)
     Route: 042
     Dates: start: 20150629, end: 20150720
  37. DOCETAXEL [Suspect]
     Active Substance: DOCETAXEL
     Dosage: 108 MILLIGRAM, Q3W,DOSE MODIFIED
     Route: 042
     Dates: start: 20150602, end: 20150602
  38. DOCETAXEL [Suspect]
     Active Substance: DOCETAXEL
     Route: 065
     Dates: start: 20150629
  39. DOCETAXEL [Suspect]
     Active Substance: DOCETAXEL
     Dosage: 108 MILLIGRAM, Q3W,DOSE MODIFIED (DOSE FORM: 16)
     Route: 042
     Dates: start: 20150602, end: 20150602
  40. DOCETAXEL [Suspect]
     Active Substance: DOCETAXEL
     Route: 065
     Dates: start: 20150629
  41. DOCETAXEL [Suspect]
     Active Substance: DOCETAXEL
     Route: 042
     Dates: start: 20150602, end: 20150602
  42. DOCETAXEL [Suspect]
     Active Substance: DOCETAXEL
     Dosage: 86 MILLIGRAM, Q3WK, DOSE DISCONTINUED (DOSE FORM: 16)
     Route: 042
     Dates: start: 20150629, end: 20150720
  43. DOCETAXEL [Suspect]
     Active Substance: DOCETAXEL
     Route: 042
  44. DOCETAXEL [Suspect]
     Active Substance: DOCETAXEL
     Dosage: 108 MILLIGRAM, Q3W,DOSE MODIFIED (DOSE FORM: 16)
     Route: 042
     Dates: start: 20150602, end: 20150602
  45. DOCETAXEL [Suspect]
     Active Substance: DOCETAXEL
     Dosage: 86 MILLIGRAM, Q3WK, DOSE DISCONTINUED (DOSE FORM: 16)
     Route: 042
     Dates: start: 20150629, end: 20150720
  46. ERIBULIN [Suspect]
     Active Substance: ERIBULIN
     Indication: HER2 positive breast cancer
     Route: 042
  47. ERIBULIN [Suspect]
     Active Substance: ERIBULIN
     Dosage: 1.5 UNK, 1.5 MG, EVERY 3 WEEKS  (FORMULATION: 120)
     Route: 042
  48. ERIBULIN [Suspect]
     Active Substance: ERIBULIN
     Route: 042
     Dates: start: 20160411, end: 20160624
  49. ERIBULIN [Suspect]
     Active Substance: ERIBULIN
     Indication: Breast cancer metastatic
     Route: 042
     Dates: start: 20160411, end: 20160411
  50. ERIBULIN [Suspect]
     Active Substance: ERIBULIN
     Indication: Breast cancer metastatic
     Dosage: 1.5 MILLIGRAM, Q3W
     Route: 042
     Dates: start: 20160411
  51. ERIBULIN [Suspect]
     Active Substance: ERIBULIN
     Indication: Breast cancer metastatic
     Route: 042
     Dates: start: 20160624, end: 20160624
  52. ERIBULIN [Suspect]
     Active Substance: ERIBULIN
     Indication: HER2 positive breast cancer
     Route: 042
     Dates: start: 20160411, end: 20160624
  53. ERIBULIN [Suspect]
     Active Substance: ERIBULIN
     Indication: HER2 positive breast cancer
     Route: 042
     Dates: start: 20160411
  54. ERIBULIN [Suspect]
     Active Substance: ERIBULIN
     Indication: HER2 positive breast cancer
     Dosage: 1.5 MILLIGRAM, Q3W
     Route: 042
     Dates: start: 20160411, end: 20160624
  55. ERIBULIN [Suspect]
     Active Substance: ERIBULIN
     Route: 042
  56. ERIBULIN [Suspect]
     Active Substance: ERIBULIN
     Route: 042
  57. ERIBULIN [Suspect]
     Active Substance: ERIBULIN
     Dosage: 1.5 MILLIGRAM, Q3W
     Route: 042
  58. ERIBULIN [Suspect]
     Active Substance: ERIBULIN
     Route: 042
  59. ERIBULIN [Suspect]
     Active Substance: ERIBULIN
     Dosage: UNK
     Route: 065
  60. ERIBULIN [Suspect]
     Active Substance: ERIBULIN
     Dosage: 1.5 MILLIGRAM, Q3WK
     Route: 042
     Dates: start: 20160411, end: 20160624
  61. ERIBULIN [Suspect]
     Active Substance: ERIBULIN
     Route: 042
  62. ERIBULIN [Suspect]
     Active Substance: ERIBULIN
     Dosage: 1.5 MILLIGRAM, Q3W
     Route: 042
     Dates: start: 20160411
  63. ERIBULIN [Suspect]
     Active Substance: ERIBULIN
     Route: 042
  64. ERIBULIN [Suspect]
     Active Substance: ERIBULIN
     Route: 042
  65. ERIBULIN [Suspect]
     Active Substance: ERIBULIN
     Route: 042
     Dates: start: 20160411
  66. ERIBULIN [Suspect]
     Active Substance: ERIBULIN
     Route: 042
     Dates: start: 20160411
  67. ERIBULIN [Suspect]
     Active Substance: ERIBULIN
     Route: 042
     Dates: start: 20160411
  68. ERIBULIN [Suspect]
     Active Substance: ERIBULIN
     Route: 042
  69. ERIBULIN [Suspect]
     Active Substance: ERIBULIN
     Route: 042
  70. ERIBULIN [Suspect]
     Active Substance: ERIBULIN
     Route: 065
  71. ERIBULIN [Suspect]
     Active Substance: ERIBULIN
     Route: 042
  72. ERIBULIN [Suspect]
     Active Substance: ERIBULIN
     Route: 042
  73. ERIBULIN [Suspect]
     Active Substance: ERIBULIN
     Route: 042
     Dates: start: 20160624, end: 20160624
  74. ERIBULIN [Suspect]
     Active Substance: ERIBULIN
     Route: 042
  75. ERIBULIN [Suspect]
     Active Substance: ERIBULIN
     Route: 065
  76. ERIBULIN [Suspect]
     Active Substance: ERIBULIN
     Route: 042
     Dates: start: 20160411
  77. NERATINIB [Suspect]
     Active Substance: NERATINIB
     Indication: HER2 positive breast cancer
     Route: 065
  78. NERATINIB [Suspect]
     Active Substance: NERATINIB
     Indication: Breast cancer metastatic
     Dosage: UNK; CUMULATIVE DOSE: 182880.0 MG (ADDITIONAL INFO ON DRUG: INTRAVENTRICULAR)
     Route: 048
  79. NERATINIB [Suspect]
     Active Substance: NERATINIB
     Indication: Breast cancer metastatic
     Dosage: 40 MG QD
     Route: 048
     Dates: start: 20170901, end: 20180314
  80. NERATINIB [Suspect]
     Active Substance: NERATINIB
     Indication: HER2 positive breast cancer
     Route: 048
     Dates: start: 20180223, end: 20180420
  81. NERATINIB [Suspect]
     Active Substance: NERATINIB
     Route: 048
     Dates: start: 20170901
  82. NERATINIB [Suspect]
     Active Substance: NERATINIB
     Route: 048
     Dates: start: 20170901, end: 20180314
  83. NERATINIB [Suspect]
     Active Substance: NERATINIB
     Route: 048
  84. NERATINIB [Suspect]
     Active Substance: NERATINIB
     Route: 048
  85. NERATINIB [Suspect]
     Active Substance: NERATINIB
     Dosage: 40 MG QD CUMULATIVE DOSE: 224890.0 MG (ADDITIONAL INFO ON DRUG: INTRAVENTRICULAR)
     Route: 048
     Dates: start: 20170901, end: 20180314
  86. NERATINIB [Suspect]
     Active Substance: NERATINIB
     Route: 048
  87. NERATINIB [Suspect]
     Active Substance: NERATINIB
     Route: 048
     Dates: start: 20170901
  88. NERATINIB [Suspect]
     Active Substance: NERATINIB
     Route: 048
     Dates: start: 20170901, end: 20180216
  89. NERATINIB [Suspect]
     Active Substance: NERATINIB
     Route: 048
  90. NERATINIB [Suspect]
     Active Substance: NERATINIB
     Route: 048
  91. NERATINIB [Suspect]
     Active Substance: NERATINIB
  92. NERATINIB [Suspect]
     Active Substance: NERATINIB
     Route: 065
     Dates: start: 20180223, end: 20180420
  93. NERATINIB [Suspect]
     Active Substance: NERATINIB
     Route: 065
  94. NERATINIB [Suspect]
     Active Substance: NERATINIB
     Route: 048
     Dates: start: 20180223, end: 20180420
  95. NERATINIB [Suspect]
     Active Substance: NERATINIB
     Route: 048
     Dates: start: 20170901, end: 20180314
  96. NERATINIB [Suspect]
     Active Substance: NERATINIB
     Route: 048
  97. NERATINIB [Suspect]
     Active Substance: NERATINIB
     Route: 048
  98. NERATINIB [Suspect]
     Active Substance: NERATINIB
     Route: 048
     Dates: start: 20170901, end: 20180314
  99. NERATINIB [Suspect]
     Active Substance: NERATINIB
     Route: 048
  100. NERATINIB [Suspect]
     Active Substance: NERATINIB
     Route: 048
  101. NERATINIB [Suspect]
     Active Substance: NERATINIB
     Dosage: UNK; ; CUMULATIVE DOSE: 182880.0 MG (ADDITIONAL INFO ON DRUG: INTRAVENTRICULAR)
     Route: 048
  102. NERATINIB [Suspect]
     Active Substance: NERATINIB
     Route: 048
  103. NERATINIB [Suspect]
     Active Substance: NERATINIB
     Dosage: 40 UNK UNK; ; CUMULATIVE DOSE: 182880.0 MG (ADDITIONAL INFO ON DRUG: INTRAVENTRICULAR)
     Route: 048
  104. NERATINIB [Suspect]
     Active Substance: NERATINIB
     Route: 048
     Dates: start: 20170901, end: 20180216
  105. NERATINIB [Suspect]
     Active Substance: NERATINIB
     Route: 048
     Dates: start: 20170901
  106. PERTUZUMAB [Suspect]
     Active Substance: PERTUZUMAB
     Indication: Breast cancer metastatic
     Dosage: TARGETED THERAPY (CUMULATIVE DOSE: 800.0MG)
     Route: 041
     Dates: start: 20150622, end: 20151102
  107. PERTUZUMAB [Suspect]
     Active Substance: PERTUZUMAB
     Indication: HER2 positive breast cancer
     Dosage: 420 MILLIGRAM, Q3WK, TARGETED THERAPY (DOSE FORM: 230, CUMULATIVE DOSE: 800.0MG)
     Route: 041
     Dates: start: 20150622, end: 20151102
  108. PERTUZUMAB [Suspect]
     Active Substance: PERTUZUMAB
     Indication: HER2 positive breast cancer
     Route: 042
     Dates: start: 20151102, end: 20151102
  109. PERTUZUMAB [Suspect]
     Active Substance: PERTUZUMAB
     Indication: Breast cancer metastatic
     Dosage: 840 MILLIGRAM, 1DF
     Route: 042
  110. PERTUZUMAB [Suspect]
     Active Substance: PERTUZUMAB
     Route: 042
  111. PERTUZUMAB [Suspect]
     Active Substance: PERTUZUMAB
     Dosage: 840 MG LOADING DOSE; (DOSE FORM: 230)
     Route: 042
  112. PERTUZUMAB [Suspect]
     Active Substance: PERTUZUMAB
     Route: 042
  113. PERTUZUMAB [Suspect]
     Active Substance: PERTUZUMAB
     Route: 042
  114. PERTUZUMAB [Suspect]
     Active Substance: PERTUZUMAB
     Route: 041
     Dates: start: 20150622, end: 20151102
  115. PERTUZUMAB [Suspect]
     Active Substance: PERTUZUMAB
     Dosage: 420 MILLIGRAM, Q3W,TARGETED THERAPY
     Route: 042
     Dates: start: 20150622, end: 20150622
  116. PERTUZUMAB [Suspect]
     Active Substance: PERTUZUMAB
     Dosage: 840 MILLIGRAM,LOADING CASE
     Route: 042
  117. PERTUZUMAB [Suspect]
     Active Substance: PERTUZUMAB
     Route: 042
  118. PERTUZUMAB [Suspect]
     Active Substance: PERTUZUMAB
     Dosage: 1 DOSAGE FORM, Q3W, UNK, Q3WK, DOSE REDUCED
     Route: 042
  119. PERTUZUMAB [Suspect]
     Active Substance: PERTUZUMAB
     Dosage: 1 DOSAGE FORM, Q3W, UNK, Q3WK, DOSE REDUCED
     Route: 042
  120. PERTUZUMAB [Suspect]
     Active Substance: PERTUZUMAB
     Dosage: 840 MG EVERY 3 WEEKS (1 DF; DOSE FORM: 230)
     Route: 042
  121. PERTUZUMAB [Suspect]
     Active Substance: PERTUZUMAB
     Route: 042
  122. PERTUZUMAB [Suspect]
     Active Substance: PERTUZUMAB
     Dosage: 420 MG, Q3W (DOSE FORM: 230)
     Route: 042
  123. PERTUZUMAB [Suspect]
     Active Substance: PERTUZUMAB
     Dosage: 420 MILLIGRAM, Q3W,TARGETED THERAPY
     Route: 042
  124. PERTUZUMAB [Suspect]
     Active Substance: PERTUZUMAB
     Dosage: LOADING DOSE , 840 MG
     Route: 042
  125. PERTUZUMAB [Suspect]
     Active Substance: PERTUZUMAB
     Dosage: 420 MILLIGRAM, Q3W,TARGETED THERAPY
     Route: 041
     Dates: start: 20150622, end: 20151102
  126. PERTUZUMAB [Suspect]
     Active Substance: PERTUZUMAB
     Dosage: 420 MILLIGRAM, Q3W,TARGETED THERAPY; ALSO RECEIVED 840 MG (DOSE FORM: 230)
     Route: 042
     Dates: start: 20150622, end: 20151102
  127. PERTUZUMAB [Suspect]
     Active Substance: PERTUZUMAB
     Dosage: 840 MILLIGRAM,LOADING CASE
     Route: 042
  128. PERTUZUMAB [Suspect]
     Active Substance: PERTUZUMAB
     Dosage: 840 MILLIGRAM, Q3W (1 DF)
     Route: 042
  129. PERTUZUMAB [Suspect]
     Active Substance: PERTUZUMAB
     Dosage: TARGETED THERAPY , 420 MG, EVERY 3 WEEKS
     Route: 042
     Dates: start: 20150622, end: 20151102
  130. PERTUZUMAB [Suspect]
     Active Substance: PERTUZUMAB
     Dosage: 840 MILLIGRAM,LOADING CASE (DOSE FORM: 230)
     Route: 042
  131. PERTUZUMAB [Suspect]
     Active Substance: PERTUZUMAB
     Route: 042
  132. PERTUZUMAB [Suspect]
     Active Substance: PERTUZUMAB
     Dosage: 420 MILLIGRAM, Q3WK, TARGETED THERAPY
     Route: 042
     Dates: start: 20150622, end: 20151102
  133. PERTUZUMAB [Suspect]
     Active Substance: PERTUZUMAB
     Route: 042
  134. TRASTUZUMAB [Suspect]
     Active Substance: TRASTUZUMAB
     Indication: Breast cancer metastatic
     Dosage: 140 MILLIGRAM, Q3W
     Route: 042
  135. TRASTUZUMAB [Suspect]
     Active Substance: TRASTUZUMAB
     Indication: HER2 positive breast cancer
     Route: 042
     Dates: start: 20150601, end: 20151101
  136. TRASTUZUMAB [Suspect]
     Active Substance: TRASTUZUMAB
     Indication: HER2 positive breast cancer
     Route: 042
     Dates: start: 20160215, end: 20160215
  137. TRASTUZUMAB [Suspect]
     Active Substance: TRASTUZUMAB
     Indication: Breast cancer metastatic
     Dosage: 300 MILLIGRAM, Q3W (DOSE MODIFIED)
     Route: 042
     Dates: start: 20150629, end: 20151102
  138. TRASTUZUMAB [Suspect]
     Active Substance: TRASTUZUMAB
     Dosage: DOSE REDUCED , 1 DOSAGE FORM, EVERY 3 WEEKS
     Route: 042
  139. TRASTUZUMAB [Suspect]
     Active Substance: TRASTUZUMAB
     Dosage: 300 MILLIGRAM, Q3W (DOSE MODIFIED)
     Route: 042
  140. TRASTUZUMAB [Suspect]
     Active Substance: TRASTUZUMAB
     Route: 042
  141. TRASTUZUMAB [Suspect]
     Active Substance: TRASTUZUMAB
     Route: 042
     Dates: start: 20151201, end: 20160215
  142. TRASTUZUMAB [Suspect]
     Active Substance: TRASTUZUMAB
     Dosage: 350 MG , LOADING DOSE
     Route: 042
     Dates: start: 20150601
  143. TRASTUZUMAB [Suspect]
     Active Substance: TRASTUZUMAB
     Route: 042
     Dates: start: 20160215, end: 20160215
  144. TRASTUZUMAB [Suspect]
     Active Substance: TRASTUZUMAB
     Dosage: UNK, Q3W, DOSE REDUCED
     Route: 042
  145. TRASTUZUMAB [Suspect]
     Active Substance: TRASTUZUMAB
     Dosage: DOSE MODIFIED , 300 MG
     Route: 042
     Dates: start: 20150629, end: 20151102
  146. TRASTUZUMAB [Suspect]
     Active Substance: TRASTUZUMAB
     Dosage: UNK UNK, DOSE REDUCED (FREQUENCY: 3 WEEK)
     Route: 042
  147. TRASTUZUMAB [Suspect]
     Active Substance: TRASTUZUMAB
     Dosage: LOADING DOSE , 350 MG
     Route: 042
     Dates: start: 20150601, end: 20150601
  148. TRASTUZUMAB [Suspect]
     Active Substance: TRASTUZUMAB
     Route: 042
     Dates: start: 20151201, end: 20151221
  149. TRASTUZUMAB [Suspect]
     Active Substance: TRASTUZUMAB
     Dosage: UNK: EVERY 3 WEEK (DOSE REDUCED.; PHARMACEUTICAL DOSE FORM: 230)
     Route: 042
  150. TRASTUZUMAB [Suspect]
     Active Substance: TRASTUZUMAB
     Dosage: 172 MILLIGRAM, Q3W
     Route: 042
     Dates: start: 20151201, end: 20151221
  151. TRASTUZUMAB [Suspect]
     Active Substance: TRASTUZUMAB
     Dosage: 140 MG, Q3W (DOSE FORM: 230)
     Route: 042
     Dates: start: 20160215, end: 20160215
  152. TRASTUZUMAB [Suspect]
     Active Substance: TRASTUZUMAB
     Dosage: 300 MILLIGRAM, Q3W (DOSE MODIFIED)
     Route: 042
  153. TRASTUZUMAB [Suspect]
     Active Substance: TRASTUZUMAB
     Dosage: 172 MG, Q3W (DOSE FORM: 230; CUMULATIVE DOSE: 1320.2777 MG)
     Route: 042
     Dates: start: 20151201, end: 20151221
  154. TRASTUZUMAB [Suspect]
     Active Substance: TRASTUZUMAB
     Dosage: 140 MILLIGRAM, Q3WK (PHARMACEUTICAL DOSE FORM: 293; CUMULATIVE DOSE: 5533.0557 MG)
     Route: 042
     Dates: start: 20160215, end: 20160215
  155. TRASTUZUMAB [Suspect]
     Active Substance: TRASTUZUMAB
     Dosage: UNK: EVERY 3 WEEK (DOSE REDUCED.; PHARMACEUTICAL DOSE FORM: 230)
     Route: 042
  156. TRASTUZUMAB [Suspect]
     Active Substance: TRASTUZUMAB
     Dosage: 350 MG, LOADING DOSE
     Route: 042
     Dates: start: 20150601, end: 20150601
  157. TRASTUZUMAB [Suspect]
     Active Substance: TRASTUZUMAB
     Dosage: 300 MG, Q3W (DOSE FORM: 230; CUMULATIVE DOSE: 999.57935 MG)
     Route: 042
     Dates: start: 20150629, end: 20151102
  158. TRASTUZUMAB [Suspect]
     Active Substance: TRASTUZUMAB
     Dosage: 300 MG, Q3W (DOSE FORM: 230)
     Route: 042
  159. TRASTUZUMAB [Suspect]
     Active Substance: TRASTUZUMAB
     Dosage: 350 MILLIGRAM, UNK, LOADING DOSE (PHARMACEUTICAL DOSE FORM: 293)
     Route: 042
     Dates: start: 20150601
  160. TRASTUZUMAB [Suspect]
     Active Substance: TRASTUZUMAB
     Dosage: 300 MG, Q3WK(DOSE FORM: 293; CUMULATIVE DOSE: 15157.143 MG)
     Route: 042
     Dates: start: 20150629, end: 20151102
  161. TRASTUZUMAB [Suspect]
     Active Substance: TRASTUZUMAB
     Dosage: 140 MILLIGRAM, Q3W (DOSAGE FORM: 230)
     Route: 042
     Dates: start: 20160215, end: 20160215
  162. TRASTUZUMAB [Suspect]
     Active Substance: TRASTUZUMAB
     Route: 042
     Dates: start: 20150629, end: 20150629
  163. TRASTUZUMAB [Suspect]
     Active Substance: TRASTUZUMAB
     Dosage: 300 MG, EVERY 3 WEEKS (ALSO RECEIVED 350 MG ON 01-JUN-2015) (PHARMACEUTICAL DOSE FORM: 230)
     Route: 042
     Dates: start: 20150629, end: 20151102
  164. TRASTUZUMAB [Suspect]
     Active Substance: TRASTUZUMAB
     Dosage: 172 MG, Q3W (DOSE FORM: 293; CUMULATIVE DOSE: 7420.23 MG)
     Route: 042
     Dates: start: 20151201, end: 20151221
  165. TRASTUZUMAB [Suspect]
     Active Substance: TRASTUZUMAB
     Dosage: 350 MG, (LOADING DOSE FORM: INFUSION, SOLUTION; DOSE FORM: 230)
     Route: 041
     Dates: start: 20150601, end: 20150601
  166. TRASTUZUMAB [Suspect]
     Active Substance: TRASTUZUMAB
     Dosage: 300 MILLIGRAM, Q3W (DOSE MODIFIED)
     Route: 042
     Dates: start: 20150629, end: 20151102
  167. TRASTUZUMAB [Suspect]
     Active Substance: TRASTUZUMAB
     Dosage: 350 MG, (LOADING DOSE FORM: INFUSION, SOLUTION)
     Route: 042
     Dates: start: 20150601
  168. TRASTUZUMAB [Suspect]
     Active Substance: TRASTUZUMAB
     Dosage: 1 MG, EVERY 3 WEEKS, DOSE REDUCED (PHARMACEUTICAL DOSE FORM: 230)
     Route: 042
  169. TRASTUZUMAB [Suspect]
     Active Substance: TRASTUZUMAB
     Dosage: LOADING DOSE
     Route: 041
     Dates: start: 20150601, end: 20150601
  170. TRASTUZUMAB [Suspect]
     Active Substance: TRASTUZUMAB
     Dosage: 350 MG, (LOADING DOSE FORM: INFUSION, SOLUTION; DOSE FORM: 230)
     Route: 041
     Dates: start: 20150601, end: 20150601
  171. TRASTUZUMAB [Suspect]
     Active Substance: TRASTUZUMAB
     Dosage: DOSE: 1, EVERY 3 WEEKS, DOSE REDUCED (PHARMACEUTICAL DOSAGE FORM: 230)UNKNOWN, Q3W, DOSE REDUCED
     Route: 042
  172. TRASTUZUMAB [Suspect]
     Active Substance: TRASTUZUMAB
     Dosage: 350 MILLIGRAM, (LOADING DOSE; DOSE FORM: 230; CUMULATIVE DOSE: 471.42856 MG)
     Route: 042
     Dates: start: 20150601, end: 20150601
  173. TRASTUZUMAB [Suspect]
     Active Substance: TRASTUZUMAB
     Dosage: 1 DOSAGE FORM, Q3W,DOSE REDUCED
     Route: 042
  174. TRASTUZUMAB [Suspect]
     Active Substance: TRASTUZUMAB
     Dosage: 350 MILLIGRAM, (LOADING DOSE; DOSE FORM: 230; CUMULATIVE DOSE: 471.42856 MG)
     Route: 042
     Dates: start: 20150601, end: 20150601
  175. TRASTUZUMAB [Suspect]
     Active Substance: TRASTUZUMAB
     Dosage: 140 MILLIGRAM, EVERY 3 WEEKS (PHARMACEUTICAL DOSE FORM: 230)
     Route: 042
     Dates: start: 20160215, end: 20160215
  176. TRASTUZUMAB [Suspect]
     Active Substance: TRASTUZUMAB
     Dosage: DOSE: 1, EVERY 3 WEEKS, DOSE REDUCED (PHARMACEUTICAL DOSAGE FORM: 230)
     Route: 042
  177. TRASTUZUMAB [Suspect]
     Active Substance: TRASTUZUMAB
     Route: 042
  178. TRASTUZUMAB [Suspect]
     Active Substance: TRASTUZUMAB
     Dosage: 300 MG, Q3W (DOSE FORM: 230; CUMULATIVE DOSE: 999.57935 MG)
     Route: 042
     Dates: start: 20150629, end: 20151102
  179. TRASTUZUMAB [Suspect]
     Active Substance: TRASTUZUMAB
     Dosage: 350 MILLIGRAM, LOADING DOSE
     Route: 042
     Dates: start: 20150601, end: 20150601
  180. TRASTUZUMAB [Suspect]
     Active Substance: TRASTUZUMAB
     Dosage: 300 MG, 3 WEEK (DOSE MODIFIED)
     Route: 042
     Dates: start: 20151102, end: 20151102
  181. TRASTUZUMAB [Suspect]
     Active Substance: TRASTUZUMAB
     Dosage: 1 DOSAGE FORM, Q3W,DOSE REDUCED (DOSE FORM: 230)
     Route: 042
  182. TRASTUZUMAB [Suspect]
     Active Substance: TRASTUZUMAB
     Dosage: 300 MG, EVERY 3 WEEKS, DOSE MODIFIED
     Route: 042
  183. TRASTUZUMAB [Suspect]
     Active Substance: TRASTUZUMAB
     Dosage: 172 MG, Q3W (DOSE FORM: 230; CUMULATIVE DOSE: 1320.2777 MG)
     Route: 042
     Dates: start: 20151201, end: 20151221
  184. TRASTUZUMAB [Suspect]
     Active Substance: TRASTUZUMAB
     Dosage: UNKNOWN, Q3W, DOSE REDUCED
     Route: 042
  185. ADO-TRASTUZUMAB EMTANSINE [Suspect]
     Active Substance: ADO-TRASTUZUMAB EMTANSINE
     Indication: Breast cancer metastatic
     Dosage: 172 MILLIGRAM, Q3WK (CUMULATIVE DOSE 7420.23 MG)
     Route: 042
     Dates: start: 20151201
  186. ADO-TRASTUZUMAB EMTANSINE [Suspect]
     Active Substance: ADO-TRASTUZUMAB EMTANSINE
     Indication: Breast cancer metastatic
     Route: 042
  187. ADO-TRASTUZUMAB EMTANSINE [Suspect]
     Active Substance: ADO-TRASTUZUMAB EMTANSINE
     Indication: HER2 positive breast cancer
     Route: 042
     Dates: start: 20160215, end: 20160215
  188. ADO-TRASTUZUMAB EMTANSINE [Suspect]
     Active Substance: ADO-TRASTUZUMAB EMTANSINE
     Indication: HER2 positive breast cancer
     Dosage: 140 MG, Q3WK (DOSE FORM: 230, CUMULATIVE DOSE: 1320.2777 MG)
     Route: 042
     Dates: start: 20160215, end: 20160215
  189. ADO-TRASTUZUMAB EMTANSINE [Suspect]
     Active Substance: ADO-TRASTUZUMAB EMTANSINE
     Dosage: 172 MG, Q3W (DOSE FORM: 230)
     Route: 041
     Dates: start: 20151201, end: 20151221
  190. ADO-TRASTUZUMAB EMTANSINE [Suspect]
     Active Substance: ADO-TRASTUZUMAB EMTANSINE
     Dosage: 172 MG, Q3W (DOSE FORM: 230) CUMULATIVE DOSE: 999.57935 MG
     Route: 042
     Dates: start: 20151201, end: 20151221
  191. ADO-TRASTUZUMAB EMTANSINE [Suspect]
     Active Substance: ADO-TRASTUZUMAB EMTANSINE
     Dosage: 172 MG, Q3W (DOSE FORM: 230)
     Route: 041
     Dates: start: 20151201, end: 20151221
  192. ADO-TRASTUZUMAB EMTANSINE [Suspect]
     Active Substance: ADO-TRASTUZUMAB EMTANSINE
     Dosage: 172 MILLIGRAM, Q3W
     Route: 042
     Dates: start: 20151201, end: 20151221
  193. ADO-TRASTUZUMAB EMTANSINE [Suspect]
     Active Substance: ADO-TRASTUZUMAB EMTANSINE
     Dosage: 140 MG, Q3W (DOSE FORM: 230; CUMULATIVE DOSE 1320.2777MG)
     Route: 042
     Dates: start: 20160215, end: 20160215
  194. ADO-TRASTUZUMAB EMTANSINE [Suspect]
     Active Substance: ADO-TRASTUZUMAB EMTANSINE
     Dosage: 140 MG, Q3W (DOSE FORM: 230)
     Route: 042
     Dates: start: 20160215, end: 20160215
  195. ADO-TRASTUZUMAB EMTANSINE [Suspect]
     Active Substance: ADO-TRASTUZUMAB EMTANSINE
     Dosage: 172 MG, EVERY 3 WEEKS (FORMULATION: INFUSION, SOLUTION)
     Route: 042
  196. ADO-TRASTUZUMAB EMTANSINE [Suspect]
     Active Substance: ADO-TRASTUZUMAB EMTANSINE
     Dosage: 140 MILLIGRAM, Q3W
     Route: 042
     Dates: start: 20160215, end: 20160215
  197. ADO-TRASTUZUMAB EMTANSINE [Suspect]
     Active Substance: ADO-TRASTUZUMAB EMTANSINE
     Dosage: 172 MG, Q3W (DOSE FORM: 230)
     Route: 041
     Dates: start: 20151201, end: 20151221
  198. ADO-TRASTUZUMAB EMTANSINE [Suspect]
     Active Substance: ADO-TRASTUZUMAB EMTANSINE
     Dosage: 140 MILLIGRAM, Q2WK
     Route: 042
     Dates: start: 20151201, end: 20160215
  199. ADO-TRASTUZUMAB EMTANSINE [Suspect]
     Active Substance: ADO-TRASTUZUMAB EMTANSINE
     Dosage: 140 MG, EVERY 3 WEEKS (ALSO RECEIVED 172 MG FROM 01-DEC-2015 TO 21-DEC-2015) DOSE FORM: 230
     Route: 042
     Dates: start: 20160215, end: 20160215
  200. ADO-TRASTUZUMAB EMTANSINE [Suspect]
     Active Substance: ADO-TRASTUZUMAB EMTANSINE
     Dosage: 172 MG, Q3W (DOSE FORM: 230)
     Route: 042
     Dates: start: 20151201
  201. ADO-TRASTUZUMAB EMTANSINE [Suspect]
     Active Substance: ADO-TRASTUZUMAB EMTANSINE
     Dosage: 140 MG, Q3W (DOSE FORM: 230)
     Route: 042
     Dates: start: 20151201, end: 20160215
  202. ADO-TRASTUZUMAB EMTANSINE [Suspect]
     Active Substance: ADO-TRASTUZUMAB EMTANSINE
     Dosage: 172 MG, Q3W (DOSE FORM: 230)
     Route: 042
     Dates: start: 20151201
  203. ADO-TRASTUZUMAB EMTANSINE [Suspect]
     Active Substance: ADO-TRASTUZUMAB EMTANSINE
     Dosage: 140 MG, Q3W
     Route: 042
     Dates: start: 20160215, end: 20160215
  204. ADO-TRASTUZUMAB EMTANSINE [Suspect]
     Active Substance: ADO-TRASTUZUMAB EMTANSINE
     Dosage: 172 MG, Q3W (DOSE FORM: 230)
     Route: 041
     Dates: start: 20151201, end: 20151221
  205. ADO-TRASTUZUMAB EMTANSINE [Suspect]
     Active Substance: ADO-TRASTUZUMAB EMTANSINE
     Dosage: 140 MG, Q3WK (DOSE FORM: 230, CUMULATIVE DOSE: 1320.2777 MG)
     Route: 042
     Dates: start: 20160215, end: 20160215
  206. ADO-TRASTUZUMAB EMTANSINE [Suspect]
     Active Substance: ADO-TRASTUZUMAB EMTANSINE
     Route: 042
     Dates: start: 20160215, end: 20160215
  207. ADO-TRASTUZUMAB EMTANSINE [Suspect]
     Active Substance: ADO-TRASTUZUMAB EMTANSINE
     Route: 042
     Dates: start: 20151201, end: 20160215
  208. ADO-TRASTUZUMAB EMTANSINE [Suspect]
     Active Substance: ADO-TRASTUZUMAB EMTANSINE
     Dosage: 172 MILLIGRAM, Q3WK
     Route: 042
     Dates: start: 20151201, end: 20160215
  209. ADO-TRASTUZUMAB EMTANSINE [Suspect]
     Active Substance: ADO-TRASTUZUMAB EMTANSINE
     Dosage: 140 MILLIGRAM, Q3W (FORMULATION: INFUSION, SOLUTION)
     Route: 042
  210. ADO-TRASTUZUMAB EMTANSINE [Suspect]
     Active Substance: ADO-TRASTUZUMAB EMTANSINE
     Dosage: 172 MG, Q3W (DOSE FORM: 230) CUMULATIVE DOSE: 999.57935 MG
     Route: 041
     Dates: start: 20151201, end: 20151221
  211. ADO-TRASTUZUMAB EMTANSINE [Suspect]
     Active Substance: ADO-TRASTUZUMAB EMTANSINE
     Dosage: 140 MG, Q3WK (CUMULATIVE DOSE: 5533.0557 MG)
     Route: 042
     Dates: start: 20160215, end: 20160215
  212. ADO-TRASTUZUMAB EMTANSINE [Suspect]
     Active Substance: ADO-TRASTUZUMAB EMTANSINE
     Dosage: 140 MILLIGRAM, Q3WK
     Route: 042
     Dates: start: 20160215, end: 20160215
  213. ADO-TRASTUZUMAB EMTANSINE [Suspect]
     Active Substance: ADO-TRASTUZUMAB EMTANSINE
     Dosage: 172 MG, EVERY 3 WEEK
     Route: 042
     Dates: start: 20151201, end: 20151201
  214. ADO-TRASTUZUMAB EMTANSINE [Suspect]
     Active Substance: ADO-TRASTUZUMAB EMTANSINE
     Dosage: 172 MG, Q3W (DOSE FORM: 230)
     Route: 042
     Dates: start: 20151201
  215. ADO-TRASTUZUMAB EMTANSINE [Suspect]
     Active Substance: ADO-TRASTUZUMAB EMTANSINE
     Dosage: 140 MILLIGRAM, Q3W (DOSE FORM: 230)
     Route: 042
     Dates: start: 20151201, end: 20160215
  216. ADO-TRASTUZUMAB EMTANSINE [Suspect]
     Active Substance: ADO-TRASTUZUMAB EMTANSINE
     Dosage: 140 MG, Q3W (DOSE FORM: 230)
     Route: 042
     Dates: start: 20160215, end: 20160215
  217. ADO-TRASTUZUMAB EMTANSINE [Suspect]
     Active Substance: ADO-TRASTUZUMAB EMTANSINE
     Dosage: 140 MG, Q3W (DOSE FORM: 230)
     Route: 042
     Dates: start: 20151201, end: 20160215
  218. ADO-TRASTUZUMAB EMTANSINE [Suspect]
     Active Substance: ADO-TRASTUZUMAB EMTANSINE
     Dosage: 172 MILLIGRAM, Q3W
     Route: 042
     Dates: start: 20151201, end: 20151221
  219. ADO-TRASTUZUMAB EMTANSINE [Suspect]
     Active Substance: ADO-TRASTUZUMAB EMTANSINE
     Dosage: 140 MILLIGRAM, Q3W
     Route: 042
  220. VINORELBINE [Suspect]
     Active Substance: VINORELBINE TARTRATE
     Indication: HER2 positive breast cancer
     Route: 048
  221. VINORELBINE [Suspect]
     Active Substance: VINORELBINE TARTRATE
     Indication: Breast cancer metastatic
     Route: 048
     Dates: start: 20180608, end: 20180810
  222. VINORELBINE [Suspect]
     Active Substance: VINORELBINE TARTRATE
     Route: 048
     Dates: start: 20180503, end: 20180608
  223. VINORELBINE [Suspect]
     Active Substance: VINORELBINE TARTRATE
     Route: 048
  224. VINORELBINE [Suspect]
     Active Substance: VINORELBINE TARTRATE
     Route: 048
  225. VINORELBINE [Suspect]
     Active Substance: VINORELBINE TARTRATE
     Route: 048
     Dates: start: 20180503, end: 20180608
  226. VINORELBINE [Suspect]
     Active Substance: VINORELBINE TARTRATE
     Route: 048
     Dates: start: 20180608, end: 20180810
  227. VINORELBINE [Suspect]
     Active Substance: VINORELBINE TARTRATE
     Route: 048
     Dates: start: 20180608, end: 20180810
  228. VINORELBINE [Suspect]
     Active Substance: VINORELBINE TARTRATE
     Route: 048
     Dates: start: 20180530, end: 20180608
  229. VINORELBINE [Suspect]
     Active Substance: VINORELBINE TARTRATE
     Route: 048
     Dates: start: 20180503, end: 20180508
  230. VINORELBINE TARTRATE [Suspect]
     Active Substance: VINORELBINE TARTRATE
     Indication: HER2 positive breast cancer
     Route: 048
     Dates: start: 20180503, end: 20180608
  231. VINORELBINE TARTRATE [Suspect]
     Active Substance: VINORELBINE TARTRATE
     Dosage: 60 MG / 60 UNK; (DOSE FORM: 231) (ADDITIONAL INFO DRUG: INTRAVENTRICULAR)
     Route: 048
  232. VINORELBINE TARTRATE [Suspect]
     Active Substance: VINORELBINE TARTRATE
     Route: 048
     Dates: start: 20180608, end: 20180810
  233. AMLODIPINE [Concomitant]
     Active Substance: AMLODIPINE BESYLATE
     Indication: Product used for unknown indication
     Route: 048
  234. AMLODIPINE [Concomitant]
     Active Substance: AMLODIPINE BESYLATE
     Indication: Product used for unknown indication
     Route: 048
  235. AMLODIPINE [Concomitant]
     Active Substance: AMLODIPINE BESYLATE
     Route: 048
  236. CIPROFLOXACIN [Concomitant]
     Active Substance: CIPROFLOXACIN
     Indication: Product used for unknown indication
     Dosage: 1000 MILLIGRAM, QD (DOSE FORM: 245) CUMULATIVE DOSE: 4000MG (ADDITIONAL DRUG INFO: INTRAVENTRICULAR)
     Route: 048
     Dates: start: 20151218, end: 20151225
  237. CIPROFLOXACIN [Concomitant]
     Active Substance: CIPROFLOXACIN
     Indication: Product used for unknown indication
     Route: 048
     Dates: start: 20151218, end: 20151225
  238. CIPROFLOXACIN [Concomitant]
     Active Substance: CIPROFLOXACIN
     Route: 048
     Dates: start: 20151218, end: 20151225
  239. CIPROFLOXACIN [Concomitant]
     Active Substance: CIPROFLOXACIN
     Dosage: 500 MILLIGRAM (0.5 DAY)
     Route: 048
     Dates: start: 20151218, end: 20151225
  240. CIPROFLOXACIN [Concomitant]
     Active Substance: CIPROFLOXACIN
     Route: 048
     Dates: start: 20151218, end: 20151225
  241. CIPROFLOXACIN [Concomitant]
     Active Substance: CIPROFLOXACIN
     Route: 048
     Dates: start: 20151218, end: 20151225
  242. AMOXICILLIN [Concomitant]
     Active Substance: AMOXICILLIN
     Indication: Lower respiratory tract infection
     Route: 048
     Dates: start: 20170222, end: 20170228
  243. CLAVULANATE POTASSIUM [Concomitant]
     Active Substance: CLAVULANATE POTASSIUM
     Indication: Lower respiratory tract infection
     Route: 048
     Dates: start: 20170222, end: 20170228
  244. CLAVULANATE POTASSIUM [Concomitant]
     Active Substance: CLAVULANATE POTASSIUM
     Route: 048
     Dates: start: 20170222, end: 20170228
  245. AMOXICILLIN\CLAVULANATE POTASSIUM [Concomitant]
     Active Substance: AMOXICILLIN\CLAVULANATE POTASSIUM
     Indication: Lower respiratory tract infection
     Route: 048
     Dates: start: 20170222, end: 20170228
  246. AMOXICILLIN\CLAVULANATE POTASSIUM [Concomitant]
     Active Substance: AMOXICILLIN\CLAVULANATE POTASSIUM
     Indication: Lower respiratory tract infection
     Route: 048
     Dates: start: 20170222, end: 20170228
  247. AMOXICILLIN\CLAVULANATE POTASSIUM [Concomitant]
     Active Substance: AMOXICILLIN\CLAVULANATE POTASSIUM
     Dosage: 625 MILLIGRAM (FREQUENCY: 0.33 DAY)
     Route: 048
     Dates: start: 20170222, end: 20170228
  248. AMOXICILLIN\CLAVULANATE POTASSIUM [Concomitant]
     Active Substance: AMOXICILLIN\CLAVULANATE POTASSIUM
     Route: 048
     Dates: start: 20170222, end: 20170228
  249. AMOXICILLIN\CLAVULANATE POTASSIUM [Concomitant]
     Active Substance: AMOXICILLIN\CLAVULANATE POTASSIUM
     Dosage: 625 MILLIGRAM, QD (DOSE FORM: 245) (ADDITONAL INFO ON DRUG: INTRAVENTRICULAR)
     Route: 048
     Dates: start: 20170222, end: 20170228
  250. AMOXICILLIN\CLAVULANATE POTASSIUM [Concomitant]
     Active Substance: AMOXICILLIN\CLAVULANATE POTASSIUM
     Dosage: 625 MILLIGRAM (FREQUENCY: 0.33 DAY)
     Route: 048
     Dates: start: 20170222, end: 20170228
  251. AMOXICILLIN\CLAVULANATE POTASSIUM [Concomitant]
     Active Substance: AMOXICILLIN\CLAVULANATE POTASSIUM
     Route: 048
     Dates: start: 20170222, end: 20170228
  252. DOMPERIDONE [Concomitant]
     Active Substance: DOMPERIDONE
     Indication: Product used for unknown indication
     Dosage: 30 MILLIGRAM DAILY;
     Route: 048
     Dates: start: 20160406, end: 20160421
  253. DOMPERIDONE [Concomitant]
     Active Substance: DOMPERIDONE
     Indication: Product used for unknown indication
     Route: 048
     Dates: start: 20160406, end: 20160421
  254. DOMPERIDONE [Concomitant]
     Active Substance: DOMPERIDONE
     Dosage: DOSE FORM: 245, CUMULATIVE DOSE 7470.0MG
     Route: 048
     Dates: start: 20160406, end: 20160421
  255. DOMPERIDONE [Concomitant]
     Active Substance: DOMPERIDONE
     Route: 048
     Dates: start: 20160406, end: 20160421
  256. DOMPERIDONE [Concomitant]
     Active Substance: DOMPERIDONE
     Route: 048
     Dates: start: 20160406, end: 20160421
  257. DOMPERIDONE [Concomitant]
     Active Substance: DOMPERIDONE
     Dosage: 10 MG, EVERY 0.33 DAY
     Route: 048
     Dates: start: 20160406, end: 20160421
  258. DOMPERIDONE [Concomitant]
     Active Substance: DOMPERIDONE
     Dosage: 10 MILLIGRAM (FREQUENCY: 0.33 DAY)
     Route: 048
     Dates: start: 20160406, end: 20160421
  259. FILGRASTIM [Concomitant]
     Active Substance: FILGRASTIM
     Indication: Product used for unknown indication
     Dosage: EVERY DAY FOR 3 DAYS STARTING ON DAYS 3 AND 11 , 300 MICROGRAM
     Route: 058
     Dates: start: 20160421, end: 20160712
  260. FILGRASTIM [Concomitant]
     Active Substance: FILGRASTIM
     Indication: Product used for unknown indication
     Route: 058
     Dates: start: 20150725, end: 20150730
  261. FILGRASTIM [Concomitant]
     Active Substance: FILGRASTIM
     Dosage: 300 MICROGRAM, QD, (EVERY DAY FOR 3 DAYS STARTING ON DAYS 3 AND 11)
     Route: 058
     Dates: start: 20160421, end: 20160712
  262. FILGRASTIM [Concomitant]
     Active Substance: FILGRASTIM
     Route: 058
     Dates: start: 20150725, end: 20150730
  263. FILGRASTIM [Concomitant]
     Active Substance: FILGRASTIM
     Dosage: 300 MICROGRAM, EVERY DAY FOR THREE DAYS STARTING ON DAYS 3 AND 11
     Route: 058
     Dates: start: 20160421, end: 20160712
  264. FILGRASTIM [Concomitant]
     Active Substance: FILGRASTIM
     Dosage: EVERY DAY FOR 3 DAYS STARTING ON DAYS 3 AND 11
     Route: 058
     Dates: start: 20160421, end: 20160712
  265. FILGRASTIM [Concomitant]
     Active Substance: FILGRASTIM
     Dosage: 300 MICROGRAM, EVERY DAY FOR 3 DAYS STARTING ON DAYS 3; (DOSE FORM: 120)
     Route: 058
     Dates: start: 20160421, end: 20160712
  266. FILGRASTIM [Concomitant]
     Active Substance: FILGRASTIM
     Route: 058
     Dates: start: 20150725, end: 20150730
  267. FILGRASTIM [Concomitant]
     Active Substance: FILGRASTIM
     Dosage: 300 MICROGRAM, QD (PHARMACEUTICAL DOSE FORM: 231)
     Route: 058
     Dates: start: 20150725, end: 20150730
  268. FILGRASTIM [Concomitant]
     Active Substance: FILGRASTIM
     Dosage: 300 MICROGRAM EVERY 1 DAY (EVERY DAY FOR 3 DAYS STARTING ON DAYS 3 AND 11)
     Route: 058
     Dates: start: 20160421, end: 20160712
  269. FILGRASTIM [Concomitant]
     Active Substance: FILGRASTIM
     Route: 058
     Dates: start: 20150725, end: 20150730
  270. FOLIC ACID [Concomitant]
     Active Substance: FOLIC ACID
     Indication: Blood folate decreased
     Route: 048
     Dates: start: 20150828, end: 201708
  271. FOLIC ACID [Concomitant]
     Active Substance: FOLIC ACID
     Indication: Blood folate decreased
     Route: 048
     Dates: start: 20150828
  272. FOLIC ACID [Concomitant]
     Active Substance: FOLIC ACID
     Dosage: 5 MILLIGRAM DAILY;
     Route: 048
     Dates: start: 20150828, end: 201708
  273. FOLIC ACID [Concomitant]
     Active Substance: FOLIC ACID
     Route: 048
     Dates: start: 20150828, end: 201708
  274. FOLIC ACID [Concomitant]
     Active Substance: FOLIC ACID
     Route: 048
     Dates: start: 20150828
  275. GENTAMICIN [Concomitant]
     Active Substance: GENTAMICIN
     Indication: Lower respiratory tract infection
     Route: 042
     Dates: start: 20170213, end: 201702
  276. GENTAMICIN [Concomitant]
     Active Substance: GENTAMICIN
     Indication: Lower respiratory tract infection
     Route: 042
     Dates: start: 20170213, end: 201702
  277. GENTAMICIN [Concomitant]
     Active Substance: GENTAMICIN
     Route: 042
     Dates: start: 20170213, end: 201702
  278. FILGRASTIM [Concomitant]
     Active Substance: FILGRASTIM
     Indication: Product used for unknown indication
     Dosage: 300 MICROGRAM (QD FOR 3 DAYS STARTING ON DAY 3 AND 11) RECEIVED 300 MCG FROM 25-JUL-2015
     Route: 058
     Dates: start: 20160421, end: 20160721
  279. FILGRASTIM [Concomitant]
     Active Substance: FILGRASTIM
     Dosage: 300 UG, QD (DOSE FORM: 120) ALSO RECEIVED 300 MCG FROM 25-JUL-2015 TO 30-JUL-2015
     Route: 058
     Dates: start: 20150725, end: 20150730
  280. HUMAN RED BLOOD CELL [Concomitant]
     Active Substance: HUMAN RED BLOOD CELL
     Indication: Product used for unknown indication
     Dosage: 2 UNIT, QD
     Route: 042
     Dates: start: 20160702, end: 20160702
  281. HUMAN RED BLOOD CELL [Concomitant]
     Active Substance: HUMAN RED BLOOD CELL
     Route: 042
     Dates: start: 20160702, end: 20160702
  282. HUMAN RED BLOOD CELL [Concomitant]
     Active Substance: HUMAN RED BLOOD CELL
     Route: 042
     Dates: start: 20180526, end: 20180526
  283. HUMAN RED BLOOD CELL [Concomitant]
     Active Substance: HUMAN RED BLOOD CELL
     Dosage: 2 UNIT
     Route: 042
     Dates: start: 20160702, end: 20160702
  284. HUMAN RED BLOOD CELL [Concomitant]
     Active Substance: HUMAN RED BLOOD CELL
     Dosage: 2 UNIT
     Route: 042
     Dates: start: 20180526, end: 20180526
  285. HUMAN RED BLOOD CELL [Concomitant]
     Active Substance: HUMAN RED BLOOD CELL
     Route: 042
     Dates: start: 20180526, end: 20180526
  286. LOPERAMIDE [Concomitant]
     Active Substance: LOPERAMIDE
     Indication: Diarrhoea
     Dosage: 2 MILLIGRAM, PRN
     Route: 048
     Dates: start: 20170901, end: 20171124
  287. LOPERAMIDE [Concomitant]
     Active Substance: LOPERAMIDE
     Indication: Diarrhoea
     Route: 048
     Dates: start: 20170901, end: 20171124
  288. LOPERAMIDE [Concomitant]
     Active Substance: LOPERAMIDE
     Route: 048
     Dates: start: 20170901, end: 20171124
  289. LOPERAMIDE [Concomitant]
     Active Substance: LOPERAMIDE
     Route: 048
     Dates: start: 20170901, end: 20171124
  290. LOPERAMIDE [Concomitant]
     Active Substance: LOPERAMIDE
     Route: 048
     Dates: start: 20170901, end: 20171124
  291. LOPERAMIDE [Concomitant]
     Active Substance: LOPERAMIDE
     Route: 048
     Dates: start: 20170901, end: 20171124
  292. MEROPENEM [Concomitant]
     Active Substance: MEROPENEM
     Indication: Lower respiratory tract infection
     Route: 042
     Dates: start: 20170215, end: 20170221
  293. MEROPENEM [Concomitant]
     Active Substance: MEROPENEM
     Indication: Lower respiratory tract infection
     Route: 042
     Dates: start: 20170215, end: 20170221
  294. MEROPENEM [Concomitant]
     Active Substance: MEROPENEM
     Route: 042
     Dates: start: 20170215, end: 20170221
  295. MUPIROCIN [Concomitant]
     Active Substance: MUPIROCIN
     Indication: Prophylaxis
     Route: 061
     Dates: start: 20160620, end: 20160624
  296. MUPIROCIN [Concomitant]
     Active Substance: MUPIROCIN
     Route: 061
     Dates: start: 20160620, end: 20160624
  297. MUPIROCIN [Concomitant]
     Active Substance: MUPIROCIN
     Dosage: 2 PERCENT, EVERY 0.3 DAY
     Route: 061
     Dates: start: 20160620, end: 20160624
  298. MUPIROCIN [Concomitant]
     Active Substance: MUPIROCIN
     Dosage: 2 PERCENT, EVERY 0.33 DAY
     Route: 061
     Dates: start: 20160620, end: 20160624
  299. MUPIROCIN [Concomitant]
     Active Substance: MUPIROCIN
     Route: 061
     Dates: start: 20160620, end: 20160624
  300. MUPIROCIN [Concomitant]
     Active Substance: MUPIROCIN
     Route: 061
     Dates: start: 20160620, end: 20160624
  301. MUPIROCIN [Concomitant]
     Active Substance: MUPIROCIN
     Dosage: UNK, EVERY 0.33 DAY
     Route: 061
     Dates: start: 20160620, end: 20160624
  302. PIPERACILLIN AND TAZOBACTAM [Concomitant]
     Active Substance: PIPERACILLIN SODIUM\TAZOBACTAM SODIUM
     Indication: Lower respiratory tract infection
     Route: 042
     Dates: start: 20170213, end: 20170215
  303. POTASSIUM [Concomitant]
     Active Substance: POTASSIUM
     Indication: Nutritional supplementation
     Route: 048
     Dates: start: 20150828, end: 20150830
  304. HUMAN RED BLOOD CELL [Concomitant]
     Active Substance: HUMAN RED BLOOD CELL
     Indication: Product used for unknown indication
     Dosage: 2 U, QD
     Route: 042
     Dates: start: 20180626, end: 20180626
  305. HUMAN RED BLOOD CELL [Concomitant]
     Active Substance: HUMAN RED BLOOD CELL
     Dosage: 2 UNIT, QD
     Route: 042
     Dates: start: 20160702, end: 20160702
  306. HUMAN RED BLOOD CELL [Concomitant]
     Active Substance: HUMAN RED BLOOD CELL
     Dosage: 2 UNIT, QD
     Route: 042
     Dates: start: 20180526, end: 20180526
  307. SANDO-K [Concomitant]
     Indication: Nutritional supplementation
     Dosage: 1 DOSAGE FORMS DAILY; 1 DOSAGE FORM, QD (2 TABLETS EVERY DAY)
     Route: 048
     Dates: start: 20150828, end: 20150830
  308. SANDO-K [Concomitant]
     Indication: Nutritional supplementation
     Dosage: 2 DOSAGE FORM, BID
     Route: 048
     Dates: start: 20150828, end: 20150830
  309. SANDO-K [Concomitant]
     Dosage: 2 DOSAGE FORMS DAILY;
     Route: 048
     Dates: start: 20150828, end: 20150830
  310. SANDO-K [Concomitant]
     Dosage: UNK, BID
     Route: 048
     Dates: start: 20150828, end: 20150830
  311. SANDO-K [Concomitant]
     Dosage: 2 TABLETS EVERY DAY
     Route: 048
     Dates: start: 20150828, end: 20150830
  312. SANDO-K [Concomitant]
     Dosage: 2 DF, QD, 2 TABLETS EVERY DAY (DOSE FORM: 245)
     Route: 048
     Dates: start: 20150828, end: 20150830
  313. SANDO-K [Concomitant]
     Dosage: 1 DOSAGE FORM, QD (2 TABLETS EVERY DAY)
     Route: 048
     Dates: start: 20150828, end: 20150830
  314. PIPERACILLIN SODIUM\TAZOBACTAM SODIUM [Concomitant]
     Active Substance: PIPERACILLIN SODIUM\TAZOBACTAM SODIUM
     Indication: Lower respiratory tract infection
     Route: 042
     Dates: start: 20170213, end: 20170215
  315. PIPERACILLIN SODIUM\TAZOBACTAM SODIUM [Concomitant]
     Active Substance: PIPERACILLIN SODIUM\TAZOBACTAM SODIUM
     Indication: Lower respiratory tract infection
     Route: 042
     Dates: start: 20170213, end: 20170215
  316. PIPERACILLIN SODIUM\TAZOBACTAM SODIUM [Concomitant]
     Active Substance: PIPERACILLIN SODIUM\TAZOBACTAM SODIUM
     Route: 042
     Dates: start: 20170213, end: 20170215

REACTIONS (34)
  - Throat irritation [Fatal]
  - Odynophagia [Fatal]
  - Decreased appetite [Fatal]
  - Decreased appetite [Fatal]
  - Disease progression [Fatal]
  - Folate deficiency [Fatal]
  - Palpitations [Fatal]
  - Alopecia [Not Recovered/Not Resolved]
  - Condition aggravated [Not Recovered/Not Resolved]
  - Diarrhoea [Fatal]
  - Diarrhoea [Fatal]
  - Dysphonia [Fatal]
  - Lethargy [Fatal]
  - Hyperchlorhydria [Fatal]
  - Colitis [Fatal]
  - Weight decreased [Fatal]
  - Dyspepsia [Fatal]
  - Fatigue [Unknown]
  - Rash pruritic [Fatal]
  - Neuropathy peripheral [Fatal]
  - Hypoaesthesia [Fatal]
  - Thrombocytopenia [Fatal]
  - Nausea [Unknown]
  - Tremor [Fatal]
  - Cough [Fatal]
  - Pyrexia [Fatal]
  - Mucosal inflammation [Fatal]
  - Fatigue [Fatal]
  - Neutropenia [Fatal]
  - Pancytopenia [Fatal]
  - Pyrexia [Fatal]
  - Intentional product misuse [Fatal]
  - Off label use [Fatal]
  - Product use issue [Unknown]

NARRATIVE: CASE EVENT DATE: 20150101
